FAERS Safety Report 6179885-7 (Version None)
Quarter: 2009Q2

REPORT INFORMATION
  Report Type: 
  Country: None (occurrence: None)
  Receive Date: 20090505
  Receipt Date: 20090203
  Transmission Date: 20091009
  Serious: No
  Sender: FDA-Public Use
  Company Number: US-TYCO HEALTHCARE/MALLINCKRODT-T200900186

PATIENT
  Sex: Female
  Weight: 63.039 kg

DRUGS (10)
  1. OXYCODONE HCL EXTENDED-RELEASE [Suspect]
     Indication: PAIN
     Dosage: UNK
     Dates: start: 20080101, end: 20081201
  2. OXYCODONE HCL EXTENDED-RELEASE [Suspect]
     Dosage: UNK
     Dates: start: 20081201, end: 20090125
  3. PAXIL [Concomitant]
     Indication: DEPRESSION
     Dosage: 40 MG, 2 EVERY NIGHT
     Dates: start: 20030101
  4. LANTUS [Concomitant]
     Indication: DIABETES MELLITUS
     Dosage: 10 U, QHS
  5. NOVOLOG [Concomitant]
     Indication: DIABETES MELLITUS
     Dosage: SLIDING SCALE, TID
  6. NEXIUM [Concomitant]
     Indication: GASTROOESOPHAGEAL REFLUX DISEASE
     Dosage: 40 MG, QD
  7. NEXIUM [Concomitant]
     Indication: COLITIS ULCERATIVE
  8. IMITREX                            /01044801/ [Concomitant]
     Indication: MIGRAINE
     Dosage: UNK, PRN
  9. EXCEDRIN (MIGRAINE) [Concomitant]
     Indication: MIGRAINE
     Dosage: UNK, PRN
  10. NASACORT [Concomitant]
     Dosage: 1 SPRAY AM, 2 SPRAYS PM

REACTIONS (3)
  - DISORIENTATION [None]
  - DRUG EFFECT DECREASED [None]
  - WITHDRAWAL SYNDROME [None]
